FAERS Safety Report 24005180 (Version 1)
Quarter: 2024Q2

REPORT INFORMATION
  Report Type: Spontaneous
  Country: US (occurrence: None)
  Receive Date: 20240621
  Receipt Date: 20240621
  Transmission Date: 20240716
  Serious: Yes (Disabling, Other)
  Sender: FDA-Public Use
  Company Number: None

PATIENT
  Age: 53 Year
  Sex: Male
  Weight: 95.85 kg

DRUGS (14)
  1. OMEPRAZOLE [Suspect]
     Active Substance: OMEPRAZOLE
     Indication: Gastrooesophageal reflux disease
     Dosage: 1 CAPSULE ORAL
     Route: 048
  2. AMLODIPINE [Concomitant]
     Active Substance: AMLODIPINE BESYLATE
  3. ARIPIPRAZOLE [Concomitant]
  4. DULOXETINE [Concomitant]
  5. FUROSEMIDE [Concomitant]
     Active Substance: FUROSEMIDE
  6. GABAPENTIN [Concomitant]
     Active Substance: GABAPENTIN
  7. LAMOTRIGINE [Concomitant]
     Active Substance: LAMOTRIGINE
  8. LEVOTHYUROXINE [Concomitant]
  9. MONTELUKAST SODIUM [Concomitant]
     Active Substance: MONTELUKAST SODIUM
  10. METOPROLOL [Concomitant]
  11. PREDNISONE [Concomitant]
     Active Substance: PREDNISONE
  12. ROSUVASTATIN [Concomitant]
  13. TACROLIMUS [Concomitant]
     Active Substance: TACROLIMUS
  14. VITAMINS [Concomitant]
     Active Substance: VITAMINS

REACTIONS (9)
  - Eating disorder [None]
  - Aggression [None]
  - Apathy [None]
  - Abnormal behaviour [None]
  - Positron emission tomogram abnormal [None]
  - Dementia Alzheimer^s type [None]
  - Frontotemporal dementia [None]
  - Brain injury [None]
  - Product complaint [None]

NARRATIVE: CASE EVENT DATE: 20240101
